FAERS Safety Report 24884176 (Version 1)
Quarter: 2025Q1

REPORT INFORMATION
  Report Type: Spontaneous
  Country: US (occurrence: US)
  Receive Date: 20250124
  Receipt Date: 20250124
  Transmission Date: 20250409
  Serious: Yes (Life-Threatening, Hospitalization, Other)
  Sender: PFIZER
  Company Number: US-PFIZER INC-PV202500008361

PATIENT
  Age: 28 Year
  Sex: Male
  Weight: 80 kg

DRUGS (22)
  1. PROPOFOL [Suspect]
     Active Substance: PROPOFOL
     Indication: Sedation
     Route: 041
  2. PROPOFOL [Suspect]
     Active Substance: PROPOFOL
  3. FENTANYL [Concomitant]
     Active Substance: FENTANYL
  4. CISATRACURIUM [Concomitant]
     Active Substance: CISATRACURIUM
  5. MANNITOL [Concomitant]
     Active Substance: MANNITOL
  6. CEFAZOLIN [Concomitant]
     Active Substance: CEFAZOLIN
  7. PANCURONIUM [Concomitant]
     Active Substance: PANCURONIUM
  8. ISOFLURANE [Concomitant]
     Active Substance: ISOFLURANE
  9. FAMOTIDINE [Concomitant]
     Active Substance: FAMOTIDINE
  10. PHENYTOIN [Concomitant]
     Active Substance: PHENYTOIN
  11. METOCLOPRAMIDE [Concomitant]
     Active Substance: METOCLOPRAMIDE
  12. VECURONIUM [Concomitant]
     Active Substance: VECURONIUM BROMIDE
  13. NIFEDIPINE [Concomitant]
     Active Substance: NIFEDIPINE
  14. LABETALOL [Concomitant]
     Active Substance: LABETALOL
  15. ALBUMIN HUMAN [Concomitant]
     Active Substance: ALBUMIN HUMAN
  16. POTASSIUM CHLORIDE [Concomitant]
     Active Substance: POTASSIUM CHLORIDE
  17. FUROSEMIDE [Concomitant]
     Active Substance: FUROSEMIDE
  18. MAGNESIUM SULFATE [Concomitant]
     Active Substance: MAGNESIUM SULFATE
  19. MIDAZOLAM [Concomitant]
     Active Substance: MIDAZOLAM
  20. ACETAMINOPHEN [Concomitant]
     Active Substance: ACETAMINOPHEN
  21. MORPHINE [Concomitant]
     Active Substance: MORPHINE
  22. DIATRIZOATE MEGLUMINE [Concomitant]
     Active Substance: DIATRIZOATE MEGLUMINE

REACTIONS (1)
  - Pancreatitis [Recovering/Resolving]
